FAERS Safety Report 7514105-X (Version None)
Quarter: 2011Q2

REPORT INFORMATION
  Report Type: 
  Country: None (occurrence: None)
  Receive Date: 20110531
  Receipt Date: 20101101
  Transmission Date: 20111010
  Serious: No
  Sender: FDA-Public Use
  Company Number: US-BAYER-201039200NA

PATIENT
  Age: 30 Year
  Sex: Female

DRUGS (5)
  1. AVELOX [Suspect]
     Indication: SINUSITIS
     Dosage: 400 MG, QD
     Route: 048
  2. PREDNISONE [Concomitant]
     Dosage: 50 MG, UNK
  3. TOPAMAX [Concomitant]
  4. PREDNISONE [Concomitant]
     Dosage: 10 MG, UNK
  5. WELLBUTRIN [Concomitant]

REACTIONS (3)
  - ANXIETY [None]
  - DIZZINESS [None]
  - TREMOR [None]
